FAERS Safety Report 5281286-0 (Version None)
Quarter: 2007Q1

REPORT INFORMATION
  Report Type: 
  Country: None (occurrence: None)
  Receive Date: 20061221
  Receipt Date: 20060919
  Transmission Date: 20070707
  Serious: No
  Sender: FDA-Public Use
  Company Number: SP00983

PATIENT

DRUGS (1)
  1. XIFAXAN [Suspect]
     Indication: DRUG USE FOR UNKNOWN INDICATION

REACTIONS (1)
  - NEPHRITIS INTERSTITIAL [None]
